FAERS Safety Report 24163942 (Version 2)
Quarter: 2024Q3

REPORT INFORMATION
  Report Type: Spontaneous
  Country: CA (occurrence: CA)
  Receive Date: 20240801
  Receipt Date: 20240826
  Transmission Date: 20241017
  Serious: Yes (Death, Life-Threatening, Hospitalization, Other)
  Sender: DAIICHI
  Company Number: CA-AstraZeneca-2024A169407

PATIENT
  Sex: Female

DRUGS (1)
  1. TRASTUZUMAB DERUXTECAN [Suspect]
     Active Substance: TRASTUZUMAB DERUXTECAN
     Indication: HER2 positive breast cancer
     Dosage: 5.4 MG/KG, ONCE EVERY 56 HOURS
     Route: 042

REACTIONS (4)
  - Pneumocystis jirovecii pneumonia [Fatal]
  - Pulmonary toxicity [Fatal]
  - Respiratory failure [Fatal]
  - Malaise [Fatal]
